FAERS Safety Report 19803936 (Version 1)
Quarter: 2021Q3

REPORT INFORMATION
  Report Type: Spontaneous
  Country: IT (occurrence: IT)
  Receive Date: 20210908
  Receipt Date: 20210908
  Transmission Date: 20211014
  Serious: Yes (Other)
  Sender: FDA-Public Use
  Company Number: IT-TEVA-2021-IT-1950124

PATIENT
  Age: 61 Year
  Sex: Female

DRUGS (9)
  1. LEVOPRAID [Concomitant]
     Dosage: 25 MG
     Route: 048
  2. BRINTELLIX [Concomitant]
     Active Substance: VORTIOXETINE HYDROBROMIDE
     Indication: MAJOR DEPRESSION
     Dosage: 2 MG
     Route: 048
  3. FLUIMUCIL [Concomitant]
     Active Substance: ACETYLCYSTEINE
     Dosage: 600 MG
     Route: 048
  4. CLEXANE [Concomitant]
     Active Substance: ENOXAPARIN SODIUM
     Dosage: 4 KU
     Route: 058
  5. TAVOR (LORAZEPAM) [Concomitant]
     Active Substance: LORAZEPAM
     Dosage: 1 MG
     Route: 048
  6. CARBOPLATINO TEVA 10 MG/ML [Suspect]
     Active Substance: CARBOPLATIN
     Indication: BREAST CANCER
     Dosage: 180 MG
     Route: 042
  7. PANTOPRAZOLE [Concomitant]
     Active Substance: PANTOPRAZOLE
     Dosage: 40 MG
     Route: 048
  8. FENTANYL. [Concomitant]
     Active Substance: FENTANYL
     Dosage: 2.8 MG
     Route: 062
  9. DEURSIL [Concomitant]
     Active Substance: URSODIOL
     Dosage: 600 MG
     Route: 048

REACTIONS (3)
  - Macroglossia [Recovered/Resolved]
  - Paraesthesia [Recovered/Resolved]
  - Pruritus [Recovered/Resolved]

NARRATIVE: CASE EVENT DATE: 20210818
